FAERS Safety Report 5280254-2 (Version None)
Quarter: 2007Q1

REPORT INFORMATION
  Report Type: 
  Country: None (occurrence: None)
  Receive Date: 20070329
  Receipt Date: 20070326
  Transmission Date: 20070707
  Serious: Yes (Hospitalization)
  Sender: FDA-Public Use
  Company Number: US-GLAXOSMITHKLINE-A0638187A

PATIENT
  Age: 52 Year
  Sex: Female
  Weight: 92.7 kg

DRUGS (1)
  1. LAPATINIB [Suspect]
     Dosage: 750MG TWICE PER DAY
     Route: 048
     Dates: start: 20060808

REACTIONS (5)
  - CLOSTRIDIUM DIFFICILE COLITIS [None]
  - DEHYDRATION [None]
  - HYPOKALAEMIA [None]
  - HYPOTENSION [None]
  - MENTAL STATUS CHANGES [None]
